FAERS Safety Report 8894703 (Version 1)
Quarter: 2012Q4

REPORT INFORMATION
  Report Type: 
  Country: US (occurrence: US)
  Receive Date: 20121107
  Receipt Date: 20121107
  Transmission Date: 20130627
  Serious: No
  Sender: FDA-Public Use
  Company Number: US-AMGEN-USASP2011050439

PATIENT
  Age: 44 Year
  Sex: Female
  Weight: 75.74 kg

DRUGS (8)
  1. ENBREL [Suspect]
     Indication: PRODUCT USED FOR UNKNOWN INDICATION
     Dosage: 50 mg, qwk
     Route: 058
  2. METHOTREXATE [Concomitant]
     Dosage: 25 mg, UNK
     Route: 058
  3. MULTIVITAMINS [Concomitant]
     Dosage: UNK
     Route: 048
  4. FOLIC ACID [Concomitant]
     Dosage: 1 mg, UNK
     Route: 048
  5. VITAMIN D /00107901/ [Concomitant]
     Dosage: UNK
     Route: 048
  6. PLAQUENIL                          /00072602/ [Concomitant]
     Dosage: 20 mg, UNK
     Route: 048
  7. CALCIUM [Concomitant]
     Dosage: 500 mg, UNK
     Route: 048
  8. ADVIL                              /00044201/ [Concomitant]
     Dosage: 200 mg, UNK
     Route: 048

REACTIONS (2)
  - Fatigue [Unknown]
  - Nasopharyngitis [Unknown]
